FAERS Safety Report 4504708-9 (Version None)
Quarter: 2004Q4

REPORT INFORMATION
  Report Type: 
  Country: None (occurrence: None)
  Receive Date: 20041118
  Receipt Date: 20041018
  Transmission Date: 20050328
  Serious: Yes (Other)
  Sender: FDA-Public Use
  Company Number: BE-MERCK-0411BEL00001

PATIENT
  Age: 60 Year
  Sex: Male
  Weight: 108 kg

DRUGS (2)
  1. ZETIA [Suspect]
     Indication: HYPERCHOLESTEROLAEMIA
     Route: 048
     Dates: start: 20040101
  2. ACENOCOUMAROL [Suspect]
     Indication: PULMONARY EMBOLISM
     Route: 048
     Dates: start: 20040901

REACTIONS (1)
  - COAGULATION TIME SHORTENED [None]
